FAERS Safety Report 12814212 (Version 2)
Quarter: 2017Q1

REPORT INFORMATION
  Report Type: Spontaneous
  Country: US (occurrence: US)
  Receive Date: 20161005
  Receipt Date: 20170223
  Transmission Date: 20170428
  Serious: Yes (Other)
  Sender: FDA-Public Use
  Company Number: US-AMGEN-USASP2016044066

PATIENT
  Age: 77 Year
  Sex: Female

DRUGS (1)
  1. PROLIA [Suspect]
     Active Substance: DENOSUMAB
     Indication: OSTEOPOROSIS POSTMENOPAUSAL
     Dosage: 60 MG, Q6MO
     Route: 065
     Dates: start: 20160318

REACTIONS (13)
  - Rhinorrhoea [Unknown]
  - Oropharyngeal pain [Unknown]
  - Tendonitis [Unknown]
  - Crying [Unknown]
  - Abasia [Not Recovered/Not Resolved]
  - Pain [Unknown]
  - Chills [Unknown]
  - Sleep disorder due to a general medical condition [Unknown]
  - Back pain [Not Recovered/Not Resolved]
  - Arthralgia [Not Recovered/Not Resolved]
  - Bone pain [Unknown]
  - Emotional distress [Unknown]
  - Feeling abnormal [Unknown]
